FAERS Safety Report 4766721-6 (Version None)
Quarter: 2005Q3

REPORT INFORMATION
  Report Type: 
  Country: None (occurrence: None)
  Receive Date: 20050912
  Receipt Date: 20050829
  Transmission Date: 20060218
  Serious: Yes (Hospitalization, Other)
  Sender: FDA-Public Use
  Company Number: 2005121128

PATIENT
  Age: 26 Year
  Sex: Female

DRUGS (3)
  1. NEURONTIN [Suspect]
     Indication: BACK PAIN
  2. ALL OTHER THERAPEUTIC PRODUCTS (ALL OTHER THERAPEUTIC PRODUCTS) [Suspect]
     Indication: INTENTIONAL MISUSE
  3. ALL OTHER THERAPEUTIC PRODUCTS (ALL OTHER THERAPEUTIC PRODUCTS) [Suspect]
     Indication: OVERDOSE

REACTIONS (5)
  - DRUG INEFFECTIVE [None]
  - INTENTIONAL MISUSE [None]
  - OVERDOSE [None]
  - SKIN LACERATION [None]
  - SUICIDE ATTEMPT [None]
